FAERS Safety Report 10047373 (Version 1)
Quarter: 2014Q1

REPORT INFORMATION
  Report Type: Spontaneous
  Country: IE (occurrence: IE)
  Receive Date: 20140331
  Receipt Date: 20140331
  Transmission Date: 20141002
  Serious: Yes (Other)
  Sender: FDA-Public Use
  Company Number: IE-JNJFOC-20140318373

PATIENT
  Sex: Female

DRUGS (12)
  1. XARELTO [Suspect]
     Indication: KNEE ARTHROPLASTY
     Route: 048
  2. XARELTO [Suspect]
     Indication: KNEE ARTHROPLASTY
     Route: 048
  3. XARELTO [Suspect]
     Indication: THROMBOSIS PROPHYLAXIS
     Route: 048
  4. XARELTO [Suspect]
     Indication: THROMBOSIS PROPHYLAXIS
     Route: 048
  5. DEPOMEDRONE [Concomitant]
     Route: 065
  6. OMEPRAZOLE [Concomitant]
     Route: 065
  7. TOPIRAMATE [Concomitant]
     Indication: HEADACHE
     Route: 065
  8. AMLODIPINE [Concomitant]
     Route: 065
  9. CITALOPRAM [Concomitant]
     Route: 065
  10. ALPRAZOLAM [Concomitant]
     Route: 065
  11. ADALIMUMAB [Concomitant]
     Route: 065
  12. FLURAZEPAM [Concomitant]
     Route: 065

REACTIONS (3)
  - Headache [Recovering/Resolving]
  - Liver function test abnormal [Unknown]
  - Circulatory collapse [Unknown]
